FAERS Safety Report 4650879-3 (Version None)
Quarter: 2005Q2

REPORT INFORMATION
  Report Type: 
  Country: None (occurrence: None)
  Receive Date: 20050429
  Receipt Date: 20050422
  Transmission Date: 20051028
  Serious: Yes (Hospitalization, Disabling, Other)
  Sender: FDA-Public Use
  Company Number: 163-20785-05030751

PATIENT
  Age: 84 Year
  Sex: Male

DRUGS (14)
  1. THALOMID [Suspect]
     Indication: MULTIPLE MYELOMA
     Dosage: SEE IMAGE
     Route: 048
     Dates: start: 20050131, end: 20050206
  2. THALOMID [Suspect]
     Indication: MULTIPLE MYELOMA
     Dosage: SEE IMAGE
     Route: 048
     Dates: start: 20050207, end: 20050220
  3. DECADRON SRC [Concomitant]
  4. ACETYLSALICYLIC ACID SRT [Concomitant]
  5. MEGACE [Concomitant]
  6. ROCALTROL [Concomitant]
  7. ZYLOPRIM [Concomitant]
  8. LIPITOR [Concomitant]
  9. PROTONIX [Concomitant]
  10. LOVENOX [Concomitant]
  11. REMERON [Concomitant]
  12. AMBIEN [Concomitant]
  13. DARVOCET-N (PROPACET) [Concomitant]
  14. FOSCAR [Concomitant]

REACTIONS (11)
  - ABDOMINAL PAIN UPPER [None]
  - ANAEMIA [None]
  - BLINDNESS UNILATERAL [None]
  - DIALYSIS [None]
  - DYSPNOEA [None]
  - NEUTROPHIL PERCENTAGE INCREASED [None]
  - OEDEMA PERIPHERAL [None]
  - OPTIC ISCHAEMIC NEUROPATHY [None]
  - OPTIC NEURITIS [None]
  - RENAL FAILURE ACUTE [None]
  - WHITE BLOOD CELL COUNT INCREASED [None]
